FAERS Safety Report 6904885-6 (Version None)
Quarter: 2010Q3

REPORT INFORMATION
  Report Type: 
  Country: None (occurrence: None)
  Receive Date: 20100804
  Receipt Date: 20090730
  Transmission Date: 20110219
  Serious: No
  Sender: FDA-Public Use
  Company Number: US-PFIZER INC-2009249474

PATIENT
  Sex: Female
  Weight: 56.689 kg

DRUGS (3)
  1. LYRICA [Suspect]
     Indication: NEURALGIA
     Dosage: 150 MG, 2X/DAY
     Dates: start: 20090505
  2. TRAMADOL HYDROCHLORIDE [Concomitant]
     Dosage: UNK
  3. METHADONE HYDROCHLORIDE [Concomitant]
     Dosage: UNK

REACTIONS (1)
  - WEIGHT INCREASED [None]
